FAERS Safety Report 22631778 (Version 1)
Quarter: 2023Q2

REPORT INFORMATION
  Report Type: Spontaneous
  Country: IT (occurrence: IT)
  Receive Date: 20230623
  Receipt Date: 20230623
  Transmission Date: 20230722
  Serious: Yes (Other)
  Sender: FDA-Public Use
  Company Number: IT-002147023-NVSC2023IT109826

PATIENT
  Age: 56 Year
  Sex: Female
  Weight: 63 kg

DRUGS (6)
  1. CARBOPLATIN [Suspect]
     Active Substance: CARBOPLATIN
     Indication: Ovarian clear cell carcinoma
     Dosage: UNK (PROTOCOL EVERY 21 DAYS FOR 6 CYCLES)
     Route: 065
     Dates: start: 20220314, end: 20220623
  2. TAXOL [Suspect]
     Active Substance: PACLITAXEL
     Indication: Ovarian clear cell carcinoma
     Dosage: UNK
     Route: 065
     Dates: start: 20220314, end: 20220623
  3. DOXORUBICIN HYDROCHLORIDE [Concomitant]
     Active Substance: DOXORUBICIN HYDROCHLORIDE
     Indication: Ovarian clear cell carcinoma
     Dosage: UNK ( UNDERGOES 2 CYCLES 28 DAYS APART)
     Route: 065
  4. LANSOPRAZOLE [Concomitant]
     Active Substance: LANSOPRAZOLE
     Indication: Product used for unknown indication
     Dosage: 30 MG, QD (1 CAPSULE/DAY)
     Route: 065
  5. FLUTICASONE FUROATE [Concomitant]
     Active Substance: FLUTICASONE FUROATE
     Indication: Asthma
     Dosage: UNK
     Route: 065
  6. CLOBETASOL PROPIONATE [Concomitant]
     Active Substance: CLOBETASOL PROPIONATE
     Indication: Erythema
     Dosage: UNK (HAND AND FOOT OINTMENT)
     Route: 065

REACTIONS (11)
  - Ovarian cancer recurrent [Unknown]
  - Metastases to lymph nodes [Unknown]
  - Metastases to abdominal cavity [Unknown]
  - Pulmonary embolism [Unknown]
  - Paraesthesia [Unknown]
  - Constipation [Unknown]
  - Anaemia [Unknown]
  - Back pain [Unknown]
  - Arthralgia [Unknown]
  - Myalgia [Unknown]
  - Palmar-plantar erythrodysaesthesia syndrome [Unknown]
